FAERS Safety Report 6450545-8 (Version None)
Quarter: 2009Q4

REPORT INFORMATION
  Report Type: 
  Country: None (occurrence: None)
  Receive Date: 20091123
  Receipt Date: 20091112
  Transmission Date: 20100525
  Serious: Yes (Hospitalization, Other)
  Sender: FDA-Public Use
  Company Number: PHHO2009GB14078

PATIENT
  Sex: Female

DRUGS (9)
  1. CERTICAN [Suspect]
     Indication: ACUTE MYELOID LEUKAEMIA
     Dosage: UNK
     Dates: start: 20090928, end: 20091005
  2. DAUNORUBICIN HCL [Suspect]
     Indication: ACUTE MYELOID LEUKAEMIA
     Dosage: UNK
     Dates: start: 20090928, end: 20091005
  3. ARA-C [Suspect]
     Indication: ACUTE MYELOID LEUKAEMIA
     Dosage: UNK
     Dates: start: 20090928, end: 20091005
  4. ETOPOSIDE [Suspect]
     Indication: ACUTE MYELOID LEUKAEMIA
     Dosage: UNK
     Dates: start: 20090928, end: 20091005
  5. CYCLIZINE [Concomitant]
  6. OMEPRAZOLE [Concomitant]
  7. RALOXIFENE HCL [Concomitant]
  8. ORAMORPH SR [Concomitant]
  9. LEVOTHYROXINE SODIUM [Concomitant]

REACTIONS (3)
  - COLOSTOMY [None]
  - FEMALE GENITAL TRACT FISTULA [None]
  - RECTAL ABSCESS [None]
